FAERS Safety Report 9950817 (Version 1)
Quarter: 2014Q1

REPORT INFORMATION
  Report Type: Report from Study
  Country: US (occurrence: US)
  Receive Date: 20140304
  Receipt Date: 20140304
  Transmission Date: 20141002
  Serious: No
  Sender: FDA-Public Use
  Company Number: US-ABBVIE-13P-163-1067686-00

PATIENT
  Age: 74 Year
  Sex: Male

DRUGS (10)
  1. HUMIRA [Suspect]
     Indication: CROHN^S DISEASE
     Route: 058
     Dates: start: 201210
  2. OXYCODONE [Concomitant]
     Indication: ARTHRALGIA
     Dosage: 10/325 DAILY
  3. TAMSULOSIN [Concomitant]
     Indication: PROSTATOMEGALY
     Dosage: 4 MG DAILY
  4. BENICAR [Concomitant]
     Indication: BLOOD PRESSURE
  5. ZOLOFT [Concomitant]
     Indication: DEPRESSION
     Dosage: 50 MG DAILY
  6. CRESTOR [Concomitant]
     Indication: BLOOD CHOLESTEROL INCREASED
     Dosage: 10 MG DAILY
  7. PENTASA [Concomitant]
     Indication: CROHN^S DISEASE
     Dosage: 3000 MG DAILY
  8. PRADAXA [Concomitant]
     Indication: ANTICOAGULANT THERAPY
     Dosage: 150 MG DAILY
  9. B12 [Concomitant]
     Indication: PRODUCT USED FOR UNKNOWN INDICATION
     Dosage: DAILY
  10. VITAMIN D3 [Concomitant]
     Indication: PRODUCT USED FOR UNKNOWN INDICATION
     Dosage: DAILY

REACTIONS (1)
  - Injection site pain [Not Recovered/Not Resolved]
